FAERS Safety Report 6375990-0 (Version None)
Quarter: 2009Q3

REPORT INFORMATION
  Report Type: 
  Country: None (occurrence: None)
  Receive Date: 20090921
  Receipt Date: 20090909
  Transmission Date: 20100115
  Serious: Yes (Hospitalization, Other)
  Sender: FDA-Public Use
  Company Number: 2009AP003658

PATIENT
  Age: 73 Year
  Sex: Female

DRUGS (7)
  1. MYCOPHENOLATE MOFETIL [Suspect]
     Dosage: 1 GM; TID PO
     Route: 048
     Dates: start: 20090610, end: 20090807
  2. CALCIUM CARBONATE [Concomitant]
  3. COLECALCIFEROL (COLECALCIFEROL) [Concomitant]
  4. ALENDRONIC ACID (ALENDRONIC ACID) [Concomitant]
  5. ASPIRIN [Concomitant]
  6. HYDROXYCHLOROQUINE SULFATE [Concomitant]
  7. PREDNISOLONE [Concomitant]

REACTIONS (10)
  - CHANGE OF BOWEL HABIT [None]
  - DIARRHOEA [None]
  - DIVERTICULUM [None]
  - DIZZINESS [None]
  - ENTEROCOLITIS HAEMORRHAGIC [None]
  - FALL [None]
  - HAEMOGLOBIN DECREASED [None]
  - JOINT INJURY [None]
  - RECTAL HAEMORRHAGE [None]
  - SYNCOPE [None]
